FAERS Safety Report 15740140 (Version 1)
Quarter: 2018Q4

REPORT INFORMATION
  Report Type: Spontaneous
  Country: US (occurrence: US)
  Receive Date: 20181219
  Receipt Date: 20181219
  Transmission Date: 20190205
  Serious: Yes (Life-Threatening, Other)
  Sender: FDA-Public Use
  Company Number: None

PATIENT
  Age: 34 Year
  Sex: Female
  Weight: 78.75 kg

DRUGS (1)
  1. CYMBALTA [Suspect]
     Active Substance: DULOXETINE HYDROCHLORIDE
     Indication: NEUROPATHY PERIPHERAL
     Dosage: ?          QUANTITY:1 CAPSULE(S);?
     Route: 048

REACTIONS (12)
  - Mood swings [None]
  - Pain [None]
  - Crying [None]
  - Suicidal ideation [None]
  - Epistaxis [None]
  - Impaired work ability [None]
  - Dizziness [None]
  - Nausea [None]
  - Paraesthesia [None]
  - Abnormal behaviour [None]
  - Anger [None]
  - Hypersomnia [None]

NARRATIVE: CASE EVENT DATE: 20181207
